FAERS Safety Report 15131053 (Version 1)
Quarter: 2018Q3

REPORT INFORMATION
  Report Type: Spontaneous
  Country: FR (occurrence: FR)
  Receive Date: 20180711
  Receipt Date: 20180711
  Transmission Date: 20181010
  Serious: Yes (Other)
  Sender: FDA-Public Use
  Company Number: FR-MYLANLABS-2018M1049116

PATIENT
  Age: 91 Year
  Sex: Female
  Weight: 46 kg

DRUGS (4)
  1. DOLIPRANE [Concomitant]
     Active Substance: ACETAMINOPHEN
     Indication: BACK PAIN
     Dosage: 6 DF, QD
     Route: 048
     Dates: start: 20171121
  2. TRAMADOL MYLAN [Suspect]
     Active Substance: TRAMADOL
     Indication: BACK PAIN
     Dosage: 50 MG, UNK
     Route: 048
     Dates: start: 20171117, end: 20171122
  3. TRAMADOL MYLAN 150 MG COMPRIMIDOS DE LIBERTA??O PROLONGADA [Suspect]
     Active Substance: TRAMADOL
     Indication: BACK PAIN
     Dosage: 300 MG, QD
     Route: 048
     Dates: start: 20171122, end: 20171123
  4. PARACETAMOL B.BRAUN [Concomitant]
     Active Substance: ACETAMINOPHEN
     Indication: BACK PAIN
     Dosage: 1 G, Q6H
     Route: 041
     Dates: start: 20171117, end: 20171118

REACTIONS (2)
  - Hepatocellular injury [Recovered/Resolved]
  - Cholestasis [Recovered/Resolved]

NARRATIVE: CASE EVENT DATE: 20171124
